FAERS Safety Report 4555880-6 (Version None)
Quarter: 2005Q1

REPORT INFORMATION
  Report Type: 
  Country: None (occurrence: None)
  Receive Date: 20050119
  Receipt Date: 20041119
  Transmission Date: 20050727
  Serious: Yes (Hospitalization)
  Sender: FDA-Public Use
  Company Number: FR-ROCHE-386791

PATIENT
  Age: 58 Year
  Sex: Female

DRUGS (4)
  1. LARIAM [Suspect]
     Indication: DRUG USE FOR UNKNOWN INDICATION
     Route: 048
     Dates: start: 20000615, end: 20000615
  2. LARIAM [Suspect]
     Route: 048
     Dates: start: 20010615, end: 20010615
  3. LARIAM [Suspect]
     Route: 048
     Dates: start: 20020615, end: 20020615
  4. LARIAM [Suspect]
     Dosage: UNKNOWN DURATION.
     Route: 048
     Dates: start: 20030615, end: 20030615

REACTIONS (1)
  - RETINOPATHY [None]
